FAERS Safety Report 21244643 (Version 9)
Quarter: 2024Q3

REPORT INFORMATION
  Report Type: Spontaneous
  Country: US (occurrence: US)
  Receive Date: 20220823
  Receipt Date: 20240821
  Transmission Date: 20241017
  Serious: Yes (Death, Hospitalization)
  Sender: TEVA
  Company Number: US-TEVA-2022-US-2067315

PATIENT
  Age: 89 Year
  Sex: Male
  Weight: 61.24 kg

DRUGS (63)
  1. VALSARTAN [Suspect]
     Active Substance: VALSARTAN
     Indication: Hypertension
     Dosage: DOSAGE TEXT: 80MG
     Route: 048
     Dates: start: 20180426, end: 20180725
  2. VALSARTAN [Suspect]
     Active Substance: VALSARTAN
     Indication: Hypertension
     Dosage: DOSAGE TEXT: 160MG
     Route: 048
     Dates: start: 20191115, end: 20200213
  3. VALSARTAN [Suspect]
     Active Substance: VALSARTAN
     Indication: Hypertension
     Dosage: DOSAGE TEXT: 80MG
     Route: 048
     Dates: start: 20191212, end: 20200311
  4. VALSARTAN [Suspect]
     Active Substance: VALSARTAN
     Indication: Hypertension
     Dosage: DOSAGE TEXT: 80MG
     Route: 048
     Dates: start: 20210904, end: 20211203
  5. HYDROCHLOROTHIAZIDE\VALSARTAN [Suspect]
     Active Substance: HYDROCHLOROTHIAZIDE\VALSARTAN
     Indication: Hypertension
     Dosage: DOSAGE TEXT: TEVA
     Route: 065
     Dates: start: 20150308, end: 20150606
  6. VALSARTAN [Suspect]
     Active Substance: VALSARTAN
     Indication: Hypertension
     Dosage: DOSAGE TEXT: 80MG, ACETERIS
     Route: 048
     Dates: start: 20180626, end: 20180924
  7. VALSARTAN [Suspect]
     Active Substance: VALSARTAN
     Indication: Hypertension
     Dosage: DOSAGE TEXT: 160 MG
     Route: 065
     Dates: start: 20180921, end: 20181220
  8. VALSARTAN [Suspect]
     Active Substance: VALSARTAN
     Indication: Hypertension
     Dosage: DOSAGE TEXT: 80 MG
     Route: 048
     Dates: start: 20181130, end: 20190731
  9. VALSARTAN [Suspect]
     Active Substance: VALSARTAN
     Indication: Hypertension
     Dosage: DOSAGE TEXT: 80 MG
     Route: 048
     Dates: start: 20200111, end: 20200701
  10. VALSARTAN [Suspect]
     Active Substance: VALSARTAN
     Indication: Hypertension
     Dosage: DOSAGE TEXT: 80 MG
     Route: 048
     Dates: start: 20210517, end: 20210815
  11. VALSARTAN [Suspect]
     Active Substance: VALSARTAN
     Indication: Hypertension
     Dosage: DOSAGE TEXT: 40 MG
     Route: 048
     Dates: start: 20210913, end: 20211013
  12. VALSARTAN [Suspect]
     Active Substance: VALSARTAN
     Indication: Hypertension
     Dosage: DOSAGE TEXT: 40 MG
     Route: 048
     Dates: start: 20211213, end: 20220112
  13. VALSARTAN [Suspect]
     Active Substance: VALSARTAN
     Indication: Hypertension
     Dosage: DOSAGE TEXT: 40 MG
     Route: 048
     Dates: start: 20220222, end: 20220324
  14. LOSARTAN [Suspect]
     Active Substance: LOSARTAN\LOSARTAN POTASSIUM
     Indication: Hypertension
     Dosage: DOSAGE TEXT: 100 MG
     Route: 065
     Dates: start: 20150101, end: 20150401
  15. LOSARTAN [Suspect]
     Active Substance: LOSARTAN\LOSARTAN POTASSIUM
     Indication: Hypertension
     Dosage: DOSAGE TEXT: 25MG
     Route: 048
     Dates: start: 20180820, end: 20181019
  16. LOSARTAN [Suspect]
     Active Substance: LOSARTAN\LOSARTAN POTASSIUM
     Indication: Hypertension
     Dosage: DOSAGE TEXT: 50MG
     Route: 048
     Dates: start: 20180906, end: 20181205
  17. AMLODIPINE BESYLATE [Concomitant]
     Active Substance: AMLODIPINE BESYLATE
     Indication: Blood pressure measurement
     Dosage: DOSAGE TEXT: 5MG DAILY
     Route: 048
     Dates: start: 20130416, end: 20210912
  18. AMLODIPINE BESYLATE [Concomitant]
     Active Substance: AMLODIPINE BESYLATE
     Indication: Blood pressure measurement
     Dosage: DOSAGE TEXT: 10 MG, 1/2 TABLET NIGHTLY
     Route: 048
     Dates: start: 20131021, end: 20200323
  19. OMEPRAZOLE [Concomitant]
     Active Substance: OMEPRAZOLE
     Indication: Prophylaxis
     Dosage: DOSAGE TEXT: 20MG DAILY
     Route: 048
     Dates: start: 20140423, end: 20210624
  20. Artificial Tears/Povidone [Concomitant]
     Indication: Dry eye
     Dosage: DOSAGE TEXT: 1 DROP IN EACH EYE FOUR TIMES A DAY AS NEEDED, FREQUENCY TIME : AS REQUIRED
     Route: 047
     Dates: start: 20130515, end: 20210623
  21. CARBOXYMETHYLCELLULOSE [Concomitant]
     Active Substance: CARBOXYMETHYLCELLULOSE
     Indication: Eye irritation
     Dosage: DOSAGE TEXT: 1 DROP IN LEFT EYE AS NEEDED
     Route: 047
     Dates: start: 20180621, end: 20211014
  22. LATANOPROST [Concomitant]
     Active Substance: LATANOPROST
     Indication: Eye irritation
     Dosage: DOSAGE TEXT: 1 DROP IN EACH EYE NIGHTLY
     Route: 047
     Dates: start: 20121210, end: 20211014
  23. MIRALAX [Concomitant]
     Active Substance: POLYETHYLENE GLYCOL 3350
     Indication: Constipation
     Dates: start: 2000
  24. Dulcolax [Concomitant]
     Indication: Constipation
     Dates: start: 2000
  25. TERAZOSIN [Concomitant]
     Active Substance: TERAZOSIN HYDROCHLORIDE
     Indication: Hypertension
     Dosage: DOSAGE TEXT: 5 MG NIGHTLY
     Dates: start: 20131031, end: 20201227
  26. TERAZOSIN [Concomitant]
     Active Substance: TERAZOSIN HYDROCHLORIDE
     Indication: Hypertension
     Dosage: DOSAGE TEXT: 10 MG, NIGHTLY
  27. OXYBUTYNIN CHLORIDE [Concomitant]
     Active Substance: OXYBUTYNIN CHLORIDE
     Indication: Hypertonic bladder
     Dosage: DOSAGE TEXT: 10 MG DAILY
     Route: 048
     Dates: start: 20131031, end: 20210808
  28. PREDNISONE [Concomitant]
     Active Substance: PREDNISONE
     Indication: Inflammation
     Dosage: DOSAGE TEXT: 20 MG TWICE A DAY
     Dates: start: 20200304, end: 20200318
  29. CHLORTHALIDONE [Concomitant]
     Active Substance: CHLORTHALIDONE
     Indication: Diuretic therapy
     Dosage: DOSAGE TEXT: 50 MG, 1/2 TABLET DAILY
     Route: 065
     Dates: start: 20191120, end: 20200323
  30. CITALOPRAM HYDROBROMIDE [Concomitant]
     Active Substance: CITALOPRAM HYDROBROMIDE
     Indication: Affective disorder
     Dosage: DOSAGE TEXT: 40 MG, 1/2 TABLET DAILY
     Route: 048
     Dates: start: 20191113, end: 20200311
  31. BUDESONIDE\FORMOTEROL [Concomitant]
     Active Substance: BUDESONIDE\FORMOTEROL
     Indication: Dyspnoea
     Dosage: DOSAGE TEXT: 160/4.5 MCG, INHALE 2 PUFFS TWICE A DAY
     Dates: start: 20130221, end: 20190716
  32. CARVEDILOL [Concomitant]
     Active Substance: CARVEDILOL
     Indication: Cardiac disorder
     Dosage: DOSAGE TEXT: 25 MG, 1/2 TABLET TWICE A DAY
     Route: 048
     Dates: start: 20190204, end: 20190714
  33. METFORMIN HYDROCHLORIDE [Concomitant]
     Active Substance: METFORMIN HYDROCHLORIDE
     Indication: Diabetes mellitus
     Dosage: DOSAGE TEXT: 1000 MG, 1/2 TABLET TWICE DAILY
     Dates: start: 20170811, end: 20181017
  34. ATORVASTATIN CALCIUM [Concomitant]
     Active Substance: ATORVASTATIN CALCIUM
     Indication: Blood cholesterol abnormal
     Dosage: DOSAGE TEXT: 80 MG, 1/2 TABLET WITH EVENING MEAL
     Route: 048
     Dates: start: 20170321, end: 20180322
  35. ATORVASTATIN CALCIUM [Concomitant]
     Active Substance: ATORVASTATIN CALCIUM
     Indication: Blood cholesterol abnormal
     Dosage: DOSAGE TEXT: 20 MG DAILY
     Route: 048
  36. ACETAMINOPHEN\HYDROCODONE [Concomitant]
     Active Substance: ACETAMINOPHEN\HYDROCODONE
     Indication: Pain management
     Dosage: DOSAGE TEXT: 5 MG/325 MG EVERY FOUR HOURS AS NEEDED, FREQUENCY TIME : AS REQUIRED
     Dates: start: 20151216, end: 20160105
  37. HYDROCHLOROTHIAZIDE [Concomitant]
     Active Substance: HYDROCHLOROTHIAZIDE
     Indication: Blood pressure abnormal
     Dosage: DOSAGE TEXT: 25 MG EVERY MORNING
     Dates: start: 20131106, end: 20151207
  38. FISH OIL [Concomitant]
     Active Substance: FISH OIL
     Indication: Cardiovascular event prophylaxis
     Dosage: DOSAGE TEXT: 500 MG TWICE DAILY
     Dates: start: 20101201, end: 20210623
  39. CHOLECALCIFEROL [Concomitant]
     Active Substance: CHOLECALCIFEROL
     Indication: Vitamin supplementation
     Dosage: DOSAGE TEXT: 25MCG, FOUR TABLETS DAILY
     Dates: start: 20141220, end: 20210623
  40. VITAMINS [Concomitant]
     Active Substance: VITAMINS
     Indication: Vitamin supplementation
     Dosage: DOSAGE TEXT: UNKNOWN DOSAGE DAILY
     Dates: start: 20070122, end: 20210623
  41. ACETAMINOPHEN [Concomitant]
     Active Substance: ACETAMINOPHEN
     Indication: Pain
     Dosage: DOSAGE TEXT: 500 MG EVERY SIX HOURS AS NEEDED, FREQUENCY TIME : AS REQUIRED
     Dates: start: 20190821, end: 20190904
  42. ACETAMINOPHEN [Concomitant]
     Active Substance: ACETAMINOPHEN
     Indication: Pain
     Dosage: DOSAGE TEXT: 500 MG EVERY SIX HOURS AS NEEDED, FREQUENCY TIME : AS REQUIRED
     Dates: start: 20171006, end: 20200928
  43. LUBRIDERM [Concomitant]
     Active Substance: AVOBENZONE\HOMOSALATE\OCTISALATE\OCTOCRYLENE\OXYBENZONE
     Indication: Dry skin
     Dosage: DOSAGE TEXT: MODERATE AMOUNT APPLIED TOPICALLY TWICE A DAY
     Route: 061
     Dates: start: 20181206, end: 20190905
  44. PROTONIX [Concomitant]
     Active Substance: PANTOPRAZOLE SODIUM
     Indication: Gastric haemorrhage
     Route: 042
  45. DIOVAN HCT [Suspect]
     Active Substance: HYDROCHLOROTHIAZIDE\VALSARTAN
     Indication: Hypertension
     Dosage: DOSAGE TEXT: 160-25 MG, NOVARTIS
     Route: 065
     Dates: start: 20150107, end: 20150407
  46. DIOVAN HCT [Suspect]
     Active Substance: HYDROCHLOROTHIAZIDE\VALSARTAN
     Indication: Hypertension
     Dosage: DOSAGE TEXT: 160-12.5 MG
     Route: 065
     Dates: start: 20150427, end: 20170830
  47. DIOVAN [Suspect]
     Active Substance: VALSARTAN
     Indication: Hypertension
     Dosage: DOSAGE TEXT: 160 MG, NOVARTIS
     Route: 065
     Dates: start: 20170727, end: 20180111
  48. DIOVAN [Suspect]
     Active Substance: VALSARTAN
     Indication: Hypertension
     Dosage: DOSAGE TEXT: 80MG
     Route: 065
     Dates: start: 20180122, end: 20180510
  49. LOSARTAN POTASSIUM [Suspect]
     Active Substance: LOSARTAN POTASSIUM
     Indication: Product used for unknown indication
     Dosage: DOSAGE TEXT: 100MG, GOLDEN STATE
     Route: 065
     Dates: start: 2015
  50. IRBESARTAN [Suspect]
     Active Substance: IRBESARTAN
     Indication: Hypertension
     Dosage: DOSAGE TEXT: 300MG, SOLCO
     Route: 065
     Dates: start: 20180829, end: 20181127
  51. IRBESARTAN [Suspect]
     Active Substance: IRBESARTAN
     Indication: Hypertension
     Route: 065
  52. VALSARTAN [Suspect]
     Active Substance: VALSARTAN
     Indication: Hypertension
     Dosage: DOSAGE TEXT: 80MG, AVKARE
     Route: 065
     Dates: start: 20180426, end: 20180725
  53. TELMISARTAN [Suspect]
     Active Substance: TELMISARTAN
     Indication: Hypertension
     Dosage: DOSAGE TEXT: 40 MG, MYLAN
     Route: 065
     Dates: start: 20180822, end: 20180921
  54. LOSARTAN [Suspect]
     Active Substance: LOSARTAN\LOSARTAN POTASSIUM
     Indication: Hypertension
     Dosage: DOSAGE TEXT: 50MG
     Route: 065
     Dates: start: 20211120, end: 20220218
  55. LOSARTAN [Suspect]
     Active Substance: LOSARTAN\LOSARTAN POTASSIUM
     Indication: Hypertension
     Dosage: DOSAGE TEXT: 100MG
     Route: 065
     Dates: start: 20210430, end: 20210530
  56. LOSARTAN [Suspect]
     Active Substance: LOSARTAN\LOSARTAN POTASSIUM
     Indication: Hypertension
     Dosage: DOSAGE TEXT: 100MG
     Route: 065
     Dates: start: 20211109, end: 20211209
  57. LOSARTAN [Suspect]
     Active Substance: LOSARTAN\LOSARTAN POTASSIUM
     Indication: Hypertension
     Dosage: DOSAGE TEXT: 100MG, XLCARE
     Route: 065
     Dates: start: 20200911, end: 20201011
  58. HYDROCHLOROTHIAZIDE\VALSARTAN [Suspect]
     Active Substance: HYDROCHLOROTHIAZIDE\VALSARTAN
     Indication: Product used for unknown indication
     Dosage: 160/12.5MG, MYLAN
     Route: 065
  59. HYDROCHLOROTHIAZIDE\VALSARTAN [Suspect]
     Active Substance: HYDROCHLOROTHIAZIDE\VALSARTAN
     Indication: Product used for unknown indication
     Dosage: 160/12.5MG, AUROBINDO
     Route: 065
  60. VALSARTAN [Suspect]
     Active Substance: VALSARTAN
     Indication: Product used for unknown indication
     Dosage: LUCID
     Route: 065
  61. VALSARTAN [Suspect]
     Active Substance: VALSARTAN
     Indication: Product used for unknown indication
     Route: 065
  62. VALSARTAN [Suspect]
     Active Substance: VALSARTAN
     Indication: Product used for unknown indication
     Dosage: MACLEODS
     Route: 065
  63. VALSARTAN [Suspect]
     Active Substance: VALSARTAN
     Indication: Product used for unknown indication
     Dosage: AMNEAL
     Route: 065

REACTIONS (2)
  - Adenocarcinoma gastric [Fatal]
  - Iron deficiency anaemia [Not Recovered/Not Resolved]

NARRATIVE: CASE EVENT DATE: 20200301
